FAERS Safety Report 6218463-8 (Version None)
Quarter: 2009Q2

REPORT INFORMATION
  Report Type: 
  Country: None (occurrence: None)
  Receive Date: 20090608
  Receipt Date: 20090529
  Transmission Date: 20091009
  Serious: Yes (Death, Life-Threatening)
  Sender: FDA-Public Use
  Company Number: B0562687A

PATIENT
  Sex: Female

DRUGS (5)
  1. ZOVIRAX [Suspect]
     Indication: DRUG USE FOR UNKNOWN INDICATION
     Dosage: 125MG THREE TIMES PER DAY
     Route: 042
     Dates: start: 20090217, end: 20090218
  2. TAKEPRON [Concomitant]
     Indication: DRUG USE FOR UNKNOWN INDICATION
     Dosage: 15MG PER DAY
     Route: 065
     Dates: end: 20090219
  3. ASPIRIN [Concomitant]
     Indication: DRUG USE FOR UNKNOWN INDICATION
     Dosage: 100MG PER DAY
     Route: 048
     Dates: end: 20090218
  4. CYANOCOBALAMIN [Concomitant]
     Indication: DRUG USE FOR UNKNOWN INDICATION
     Dosage: 1500MCG PER DAY
     Dates: end: 20090219
  5. ALOSITOL [Concomitant]
     Indication: DRUG USE FOR UNKNOWN INDICATION
     Dosage: 100MG PER DAY
     Route: 048
     Dates: end: 20090219

REACTIONS (12)
  - BLISTER [None]
  - BLOOD BLISTER [None]
  - CHAPPED LIPS [None]
  - GENITAL EROSION [None]
  - MUCOSAL EROSION [None]
  - MULTI-ORGAN FAILURE [None]
  - NIKOLSKY'S SIGN [None]
  - ORAL PAIN [None]
  - PETECHIAE [None]
  - SKIN EROSION [None]
  - STEVENS-JOHNSON SYNDROME [None]
  - TOXIC EPIDERMAL NECROLYSIS [None]
